FAERS Safety Report 23248472 (Version 1)
Quarter: 2023Q4

REPORT INFORMATION
  Report Type: Spontaneous
  Country: IN (occurrence: IN)
  Receive Date: 20231201
  Receipt Date: 20231201
  Transmission Date: 20240109
  Serious: Yes (Hospitalization, Other)
  Sender: FDA-Public Use
  Company Number: None

PATIENT
  Age: 8 Year
  Sex: Female
  Weight: 20 kg

DRUGS (8)
  1. PANTOPRAZOLE SODIUM [Suspect]
     Active Substance: PANTOPRAZOLE SODIUM
     Indication: Diarrhoea
     Dosage: 20 MG, TOTAL (INJECTION PANTOPRAZOLE HALF VIAL I.E. 20 MG AS STAT MEDICATION)
     Route: 065
  2. PANTOPRAZOLE SODIUM [Suspect]
     Active Substance: PANTOPRAZOLE SODIUM
     Indication: Abdominal tenderness
  3. PANTOPRAZOLE SODIUM [Suspect]
     Active Substance: PANTOPRAZOLE SODIUM
     Indication: Abdominal pain
  4. PANTOPRAZOLE SODIUM [Suspect]
     Active Substance: PANTOPRAZOLE SODIUM
     Indication: Vomiting
  5. PANTOPRAZOLE SODIUM [Suspect]
     Active Substance: PANTOPRAZOLE SODIUM
     Indication: Diarrhoea
     Dosage: 20 MG,  1 TOTAL (TAB PANTOP 20 MG 1-0-1 FOR 1 WEEK (HALF HOUR BEFORE FOOD)
     Route: 065
  6. PANTOPRAZOLE SODIUM [Suspect]
     Active Substance: PANTOPRAZOLE SODIUM
     Indication: Abdominal tenderness
  7. PANTOPRAZOLE SODIUM [Suspect]
     Active Substance: PANTOPRAZOLE SODIUM
     Indication: Abdominal pain
  8. PANTOPRAZOLE SODIUM [Suspect]
     Active Substance: PANTOPRAZOLE SODIUM
     Indication: Vomiting

REACTIONS (2)
  - Urticaria [Unknown]
  - Angioedema [Unknown]
